FAERS Safety Report 9781428 (Version 5)
Quarter: 2014Q2

REPORT INFORMATION
  Report Type: Spontaneous
  Country: IT (occurrence: IT)
  Receive Date: 20131224
  Receipt Date: 20140407
  Transmission Date: 20141212
  Serious: Yes (Hospitalization)
  Sender: FDA-Public Use
  Company Number: IT-ELI_LILLY_AND_COMPANY-IT201312006731

PATIENT
  Age: 28 Year
  Sex: Female
  Weight: 55 kg

DRUGS (8)
  1. GEMZAR [Suspect]
     Indication: SOFT TISSUE SARCOMA
     Dosage: 920 MG, CYCLICAL
     Route: 042
     Dates: start: 20130226, end: 20130911
  2. DOCETAXEL HOSPIRA [Concomitant]
     Indication: CONNECTIVE TISSUE NEOPLASM
     Dosage: 76.67 MG, CYCLICAL
     Route: 042
     Dates: start: 20130226, end: 20130828
  3. ZOFRAN [Concomitant]
     Indication: PROPHYLAXIS OF NAUSEA AND VOMITING
     Dosage: 8 MG, UNK
     Route: 042
     Dates: start: 20130226, end: 20130911
  4. DESAMETASONE FOSF [Concomitant]
     Indication: PROPHYLAXIS OF NAUSEA AND VOMITING
     Dosage: 20 MCI, UNK
     Route: 042
     Dates: start: 20130305, end: 20130828
  5. ZARZIO [Concomitant]
     Indication: PROPHYLAXIS
     Dosage: UNK
     Route: 058
     Dates: start: 20130305, end: 20130911
  6. CETIRIZINA [Concomitant]
     Indication: PRODUCT USED FOR UNKNOWN INDICATION
     Dosage: 10 MG, UNK
     Route: 048
     Dates: start: 20130305, end: 20130911
  7. OXYCONTIN [Concomitant]
     Indication: CANCER PAIN
     Dosage: 20 MG, UNK
     Route: 048
     Dates: start: 20121206, end: 20130911
  8. GRANULOCYTE COLONY-STIMULATING FACTOR NOS [Concomitant]
     Indication: FEBRILE NEUTROPENIA

REACTIONS (5)
  - Acute respiratory failure [Recovered/Resolved]
  - Pneumonia [Recovered/Resolved]
  - Leukocytosis [Recovered/Resolved]
  - Pleural effusion [Unknown]
  - Off label use [Recovered/Resolved]
